FAERS Safety Report 14941941 (Version 1)
Quarter: 2018Q2

REPORT INFORMATION
  Report Type: Report from Study
  Country: None (occurrence: US)
  Receive Date: 20180527
  Receipt Date: 20180527
  Transmission Date: 20180711
  Serious: Yes (Other)
  Sender: FDA-Public Use
  Company Number: US-ABBVIE-18K-163-2350532-00

PATIENT
  Age: 56 Year
  Sex: Female
  Weight: 120.31 kg

DRUGS (2)
  1. HUMIRA [Suspect]
     Active Substance: ADALIMUMAB
     Indication: PSORIATIC ARTHROPATHY
     Route: 058
     Dates: start: 201711, end: 201801
  2. HUMIRA [Suspect]
     Active Substance: ADALIMUMAB
     Indication: ANKYLOSING SPONDYLITIS
     Route: 058
     Dates: start: 2017, end: 201710

REACTIONS (12)
  - Fall [Recovered/Resolved]
  - Tendon rupture [Not Recovered/Not Resolved]
  - Condition aggravated [Unknown]
  - Nerve injury [Not Recovered/Not Resolved]
  - Procedural pain [Recovered/Resolved]
  - Drug effect decreased [Not Recovered/Not Resolved]
  - Joint range of motion decreased [Recovering/Resolving]
  - Rotator cuff syndrome [Recovered/Resolved]
  - Soft tissue injury [Recovered/Resolved]
  - Surgery [Unknown]
  - Sensitivity to weather change [Unknown]
  - Nasopharyngitis [Unknown]

NARRATIVE: CASE EVENT DATE: 201706
